FAERS Safety Report 6128839-5 (Version None)
Quarter: 2009Q1

REPORT INFORMATION
  Report Type: 
  Country: None (occurrence: None)
  Receive Date: 20090320
  Receipt Date: 20090316
  Transmission Date: 20090719
  Serious: Yes (Death, Hospitalization)
  Sender: FDA-Public Use
  Company Number: TPA2009A00372

PATIENT
  Age: 85 Year
  Sex: Female

DRUGS (13)
  1. ACTOS [Suspect]
     Indication: TYPE 2 DIABETES MELLITUS
     Dosage: 45 MG, 1 IN 1 D, PER ORAL
     Route: 048
     Dates: start: 20080301, end: 20081230
  2. GLYBURIDE [Concomitant]
  3. LEVOTHYROXINE SODIUM [Concomitant]
  4. FUROSEMIDE [Concomitant]
  5. FOSAMAX [Concomitant]
  6. METOPROLOL TARTRATE [Concomitant]
  7. ISOSORBIDE DINITRATE [Concomitant]
  8. CITALOPRAM HYDROBROMIDE [Concomitant]
  9. METFORMIN HCL [Concomitant]
  10. RISPERIDONE [Concomitant]
  11. PLAVIX [Concomitant]
  12. QUINAPRIL HCL [Concomitant]
  13. PLENDIL [Concomitant]

REACTIONS (4)
  - CARDIAC FAILURE CONGESTIVE [None]
  - OEDEMA [None]
  - PULMONARY OEDEMA [None]
  - WHEEZING [None]
